FAERS Safety Report 9613874 (Version 1)
Quarter: 2013Q4

REPORT INFORMATION
  Report Type: Spontaneous
  Country: AU (occurrence: AU)
  Receive Date: 20131010
  Receipt Date: 20131010
  Transmission Date: 20140711
  Serious: Yes (Other)
  Sender: FDA-Public Use
  Company Number: AU-ABBVIE-13P-008-1156391-00

PATIENT
  Age: 37 Year
  Sex: Male

DRUGS (3)
  1. SODIUM VALPROATE [Suspect]
     Indication: PRODUCT USED FOR UNKNOWN INDICATION
  2. CLOZARIL [Suspect]
     Indication: PRODUCT USED FOR UNKNOWN INDICATION
  3. FLUPENTHIXOL [Suspect]
     Indication: PRODUCT USED FOR UNKNOWN INDICATION

REACTIONS (6)
  - Cardiomyopathy [Unknown]
  - Upper respiratory tract infection [Unknown]
  - Salivary hypersecretion [Unknown]
  - Psychotic disorder [Unknown]
  - Weight increased [Unknown]
  - Treatment noncompliance [Unknown]
